FAERS Safety Report 4975083-0 (Version None)
Quarter: 2006Q2

REPORT INFORMATION
  Report Type: 
  Country: None (occurrence: None)
  Receive Date: 20060411
  Receipt Date: 20060329
  Transmission Date: 20061013
  Serious: Yes (Life-Threatening)
  Sender: FDA-Public Use
  Company Number: VISP-NO-0604S-0201

PATIENT
  Age: 68 Year
  Sex: Male
  Weight: 48.9885 kg

DRUGS (5)
  1. VISIPAQUE [Suspect]
     Indication: DRUG USE FOR UNKNOWN INDICATION
     Dosage: NR, SINGLE DOSE, UNK
     Dates: start: 20060314, end: 20060314
  2. METFORMIN [Concomitant]
  3. ASPIRIN [Concomitant]
  4. RAMIPRIL [Concomitant]
  5. VERPAMIL [Concomitant]

REACTIONS (3)
  - ARTERIOSPASM CORONARY [None]
  - CONTRAST MEDIA REACTION [None]
  - SINUS ARREST [None]
